FAERS Safety Report 15015528 (Version 2)
Quarter: 2019Q1

REPORT INFORMATION
  Report Type: Spontaneous
  Country: US (occurrence: US)
  Receive Date: 20180615
  Receipt Date: 20190327
  Transmission Date: 20190417
  Serious: No
  Sender: FDA-Public Use
  Company Number: US-MYLANLABS-2018M1033551

PATIENT
  Sex: Female
  Weight: 73 kg

DRUGS (1)
  1. FENTANYL TRANSDERMAL SYSTEM [Suspect]
     Active Substance: FENTANYL
     Indication: BACK PAIN
     Dosage: 37.5 ?G, Q2D
     Route: 058

REACTIONS (3)
  - Drug effect decreased [Recovering/Resolving]
  - Pain [Recovering/Resolving]
  - Product adhesion issue [Unknown]
